FAERS Safety Report 24444546 (Version 2)
Quarter: 2024Q4

REPORT INFORMATION
  Report Type: Report from Study
  Country: US (occurrence: US)
  Receive Date: 20241016
  Receipt Date: 20241017
  Transmission Date: 20250115
  Serious: No
  Sender: ROCHE
  Company Number: US-ROCHE-2813717

PATIENT
  Age: 55 Year
  Sex: Male

DRUGS (14)
  1. RITUXAN [Suspect]
     Active Substance: RITUXIMAB
     Indication: Autoimmune disorder
     Dosage: (DOSE 50 ML) INFUSE 1000MG INTRAVENOUSLY EVERY 6 MONTH(S)
     Route: 041
  2. RITUXAN [Suspect]
     Active Substance: RITUXIMAB
     Indication: Polymyositis
     Route: 041
  3. RITUXAN [Suspect]
     Active Substance: RITUXIMAB
     Indication: Myopathy
     Route: 041
     Dates: start: 20240214
  4. RITUXAN [Suspect]
     Active Substance: RITUXIMAB
     Route: 041
  5. ASPIRIN [Concomitant]
     Active Substance: ASPIRIN
  6. EZETIMIBE [Concomitant]
     Active Substance: EZETIMIBE
  7. FOLIC ACID [Concomitant]
     Active Substance: FOLIC ACID
  8. GABAPENTIN [Concomitant]
     Active Substance: GABAPENTIN
  9. IMURAN [Concomitant]
     Active Substance: AZATHIOPRINE
  10. LISINOPRIL [Concomitant]
     Active Substance: LISINOPRIL
  11. METHOTREXATE [Concomitant]
     Active Substance: METHOTREXATE
  12. PREDNISONE [Concomitant]
     Active Substance: PREDNISONE
  13. PROTONIX [Concomitant]
     Active Substance: PANTOPRAZOLE SODIUM
  14. QUININE [Concomitant]
     Active Substance: QUININE

REACTIONS (3)
  - Product prescribing issue [Unknown]
  - No adverse event [Unknown]
  - Off label use [Unknown]
